FAERS Safety Report 5372493-7 (Version None)
Quarter: 2007Q2

REPORT INFORMATION
  Report Type: 
  Country: None (occurrence: None)
  Receive Date: 20070625
  Receipt Date: 20070615
  Transmission Date: 20071010
  Serious: Yes (Other)
  Sender: FDA-Public Use
  Company Number: CIP07001132

PATIENT
  Age: 85 Year
  Sex: Female

DRUGS (2)
  1. ACTONEL [Suspect]
     Indication: OSTEOPOROSIS
     Dosage: 35 MG ONCE WEEKLY ORAL
     Route: 048
     Dates: start: 20060601, end: 20070601
  2. TOPROL-XL [Concomitant]

REACTIONS (2)
  - THROAT TIGHTNESS [None]
  - THYROID NEOPLASM [None]
